FAERS Safety Report 23355254 (Version 1)
Quarter: 2024Q1

REPORT INFORMATION
  Report Type: Spontaneous
  Country: KR (occurrence: KR)
  Receive Date: 20240102
  Receipt Date: 20240102
  Transmission Date: 20240410
  Serious: Yes (Other)
  Sender: FDA-Public Use
  Company Number: KR-ALKEM LABORATORIES LIMITED-KR-ALKEM-2023-14197

PATIENT
  Age: 4 Year
  Sex: Female

DRUGS (6)
  1. SIROLIMUS [Suspect]
     Active Substance: SIROLIMUS
     Indication: Gorham^s disease
     Dosage: 0.5 MILLIGRAM, BID (TWICE DAILY)
     Route: 065
  2. SIROLIMUS [Suspect]
     Active Substance: SIROLIMUS
     Dosage: 2.75 MILLIGRAM (1.5 MG IN THE MORNING, 1.25 MG IN THE EVENING) DAILY
     Route: 065
  3. ATENOLOL [Suspect]
     Active Substance: ATENOLOL
     Indication: Gorham^s disease
     Dosage: 1.5 MILLIGRAM/KILOGRAM, QD (PER DAY)
     Route: 042
  4. ATENOLOL [Suspect]
     Active Substance: ATENOLOL
     Dosage: UNK (ORAL USE)
     Route: 048
  5. PAMIDRONATE [Suspect]
     Active Substance: PAMIDRONATE DISODIUM
     Indication: Gorham^s disease
     Dosage: 1 MILLIGRAM/KILOGRAM (TOTAL 3 MG/KG EVERY 4 MONTHS)
     Route: 042
  6. VITAMIN D3 [Concomitant]
     Active Substance: CHOLECALCIFEROL
     Indication: Vitamin supplementation
     Dosage: 1000 INTERNATIONAL UNIT, QD (PER DAY)
     Route: 065

REACTIONS (3)
  - Thrombocytopenia [Recovered/Resolved]
  - Mucosal inflammation [Recovered/Resolved]
  - Back pain [Recovered/Resolved]
